FAERS Safety Report 16567289 (Version 1)
Quarter: 2019Q3

REPORT INFORMATION
  Report Type: Spontaneous
  Country: US (occurrence: US)
  Receive Date: 20190712
  Receipt Date: 20190712
  Transmission Date: 20191004
  Serious: No
  Sender: FDA-Public Use
  Company Number: US-TEVA-2019-US-1075592

PATIENT
  Age: 67 Year
  Sex: Male

DRUGS (3)
  1. SOTALOL HYDROCHLORIDE. [Suspect]
     Active Substance: SOTALOL HYDROCHLORIDE
     Indication: HEART RATE IRREGULAR
     Dosage: 80 MG
     Route: 065
     Dates: start: 201807
  2. SOTALOL HYDROCHLORIDE. [Suspect]
     Active Substance: SOTALOL HYDROCHLORIDE
     Indication: ATRIAL FIBRILLATION
     Dates: start: 201807
  3. SOLCO^S LISINOPRIL [Concomitant]
     Indication: BLOOD PRESSURE MEASUREMENT
     Dosage: 30 MG

REACTIONS (4)
  - Pruritus [Unknown]
  - Dry skin [Unknown]
  - Rash [Unknown]
  - Rash papular [Unknown]
